FAERS Safety Report 15393557 (Version 1)
Quarter: 2018Q3

REPORT INFORMATION
  Report Type: Spontaneous
  Country: ES (occurrence: ES)
  Receive Date: 20180917
  Receipt Date: 20180917
  Transmission Date: 20181010
  Serious: Yes (Other)
  Sender: FDA-Public Use
  Company Number: ES-B.I. PHARMACEUTICALS,INC./RIDGEFIELD-2018-BI-046271

PATIENT
  Sex: Male

DRUGS (1)
  1. OMNIC [Suspect]
     Active Substance: TAMSULOSIN HYDROCHLORIDE
     Indication: PROSTATIC DISORDER
     Dosage: FORM OF ADMIN: MODIFIED?RELEASE TABLET
     Route: 048

REACTIONS (2)
  - Wrong technique in product usage process [Unknown]
  - Medication residue present [Not Recovered/Not Resolved]
